FAERS Safety Report 14525118 (Version 4)
Quarter: 2021Q1

REPORT INFORMATION
  Report Type: Spontaneous
  Country: GB (occurrence: GB)
  Receive Date: 20180213
  Receipt Date: 20210302
  Transmission Date: 20210419
  Serious: Yes (Hospitalization, Other)
  Sender: FDA-Public Use
  Company Number: PHHY2018GB022319

PATIENT
  Age: 37 Year
  Sex: Female

DRUGS (7)
  1. ZOLADEX [Suspect]
     Active Substance: GOSERELIN ACETATE
     Indication: BREAST CANCER
  2. ZOLADEX [Suspect]
     Active Substance: GOSERELIN ACETATE
     Indication: METASTASES TO LIVER
     Dosage: UNK
     Route: 048
     Dates: start: 201710
  3. LETROZOLE. [Suspect]
     Active Substance: LETROZOLE
     Indication: METASTASES TO LIVER
     Dosage: UNK
     Route: 065
     Dates: start: 201710
  4. IBRANCE [Suspect]
     Active Substance: PALBOCICLIB
     Indication: METASTASES TO LIVER
     Dosage: 100 MG, 1X/DAY
     Route: 065
     Dates: start: 201708
  5. IBRANCE [Suspect]
     Active Substance: PALBOCICLIB
     Indication: BREAST CANCER
     Dosage: 100 MG, 1X/DAY
     Route: 065
  6. LETROZOLE. [Suspect]
     Active Substance: LETROZOLE
     Indication: BREAST CANCER
     Dosage: 2.5 MG, QD
     Route: 065
     Dates: start: 201708
  7. PALBOCICLIB [Suspect]
     Active Substance: PALBOCICLIB
     Indication: METASTASES TO LIVER
     Dosage: UNK
     Route: 048
     Dates: start: 201710

REACTIONS (6)
  - Cough [Recovered/Resolved]
  - Febrile neutropenia [Recovered/Resolved]
  - SARS-CoV-2 test positive [Recovered/Resolved]
  - Neoplasm progression [Unknown]
  - Oropharyngeal pain [Recovered/Resolved]
  - C-reactive protein increased [Unknown]

NARRATIVE: CASE EVENT DATE: 201712
